FAERS Safety Report 12653574 (Version 1)
Quarter: 2016Q3

REPORT INFORMATION
  Report Type: Spontaneous
  Country: CA (occurrence: CA)
  Receive Date: 20160815
  Receipt Date: 20160815
  Transmission Date: 20161109
  Serious: Yes (Other)
  Sender: FDA-Public Use
  Company Number: CA-ALLERGAN-1665262US

PATIENT
  Age: 59 Year
  Sex: Female

DRUGS (1)
  1. FIBRISTAL [Suspect]
     Active Substance: ULIPRISTAL
     Indication: UTERINE LEIOMYOMA
     Dosage: 5 MG, QD
     Route: 048

REACTIONS (1)
  - Endometrial cancer [Unknown]
